FAERS Safety Report 20602220 (Version 1)
Quarter: 2022Q1

REPORT INFORMATION
  Report Type: Spontaneous
  Country: AT (occurrence: None)
  Receive Date: 20220316
  Receipt Date: 20220316
  Transmission Date: 20220423
  Serious: Yes (Other)
  Sender: FDA-Public Use
  Company Number: AT-ROCHE-3044531

PATIENT
  Age: 30 Year
  Sex: Female
  Weight: 5 kg

DRUGS (4)
  1. ALECTINIB [Suspect]
     Active Substance: ALECTINIB
     Indication: Lung adenocarcinoma
     Route: 065
     Dates: start: 201710
  2. BRIGATINIB [Concomitant]
     Active Substance: BRIGATINIB
     Dates: start: 202003
  3. LORLATINIB [Concomitant]
     Active Substance: LORLATINIB
     Dates: start: 202110
  4. ROSUVASTATIN [Concomitant]
     Active Substance: ROSUVASTATIN

REACTIONS (3)
  - Pericardial effusion [Unknown]
  - Blood creatine phosphokinase increased [Unknown]
  - Disease progression [Unknown]
